FAERS Safety Report 13034709 (Version 1)
Quarter: 2016Q4

REPORT INFORMATION
  Report Type: Spontaneous
  Country: US (occurrence: US)
  Receive Date: 20161216
  Receipt Date: 20161216
  Transmission Date: 20170207
  Serious: No
  Sender: FDA-Public Use
  Company Number: US-GE HEALTHCARE MEDICAL DIAGNOSTICS-OPTN-PR-1612L-0012

PATIENT

DRUGS (4)
  1. OPTISON [Suspect]
     Active Substance: ALBUMIN HUMAN
     Indication: DIAGNOSTIC PROCEDURE
  2. OPTISON [Suspect]
     Active Substance: ALBUMIN HUMAN
     Indication: NEOPLASM PROGRESSION
     Dosage: DOSE NOT REPORTED
     Route: 042
  3. NORMAL SALINE [Concomitant]
     Active Substance: SODIUM CHLORIDE
  4. OPTISON [Suspect]
     Active Substance: ALBUMIN HUMAN
     Indication: OFF LABEL USE

REACTIONS (3)
  - Dizziness [Recovered/Resolved]
  - Tinnitus [Recovered/Resolved]
  - Off label use [Recovered/Resolved]
